FAERS Safety Report 19415575 (Version 2)
Quarter: 2021Q2

REPORT INFORMATION
  Report Type: Report from Study
  Country: US (occurrence: US)
  Receive Date: 20210614
  Receipt Date: 20210624
  Transmission Date: 20210717
  Serious: Yes (Other)
  Sender: FDA-Public Use
  Company Number: US-ALXN-A202103320

PATIENT
  Sex: Female

DRUGS (2)
  1. STRENSIQ [Suspect]
     Active Substance: ASFOTASE ALFA
     Indication: HYPOPHOSPHATASIA
     Dosage: UNK
     Route: 065
  2. COVID?19 VACCINE NOS. [Suspect]
     Active Substance: COVID-19 VACCINE NOS
     Indication: COVID-19 IMMUNISATION
     Dosage: UNK
     Route: 065
     Dates: start: 20210411

REACTIONS (12)
  - Rash pruritic [Unknown]
  - Pain [Unknown]
  - Administration site bruise [Unknown]
  - Rash erythematous [Unknown]
  - Administration site haemorrhage [Unknown]
  - Vomiting [Unknown]
  - Loss of consciousness [Unknown]
  - Injection site pain [Unknown]
  - Malaise [Unknown]
  - Product administration error [Unknown]
  - Cyst [Unknown]
  - Pyrexia [Unknown]

NARRATIVE: CASE EVENT DATE: 202104
